FAERS Safety Report 7792894-7 (Version None)
Quarter: 2011Q4

REPORT INFORMATION
  Report Type: 
  Country: None (occurrence: None)
  Receive Date: 20111003
  Receipt Date: 20110919
  Transmission Date: 20120403
  Serious: Yes (Hospitalization, Other)
  Sender: FDA-Public Use
  Company Number: PHHY2011US63323

PATIENT
  Age: 56 Year
  Sex: Female

DRUGS (5)
  1. DIOVAN HCT [Suspect]
     Dosage: 2 DF, (160/12.5 MG), DAILY
     Route: 048
  2. CYMBALTA [Concomitant]
  3. NORVASC [Concomitant]
     Dosage: 25 MG, UNK
  4. POTASSIUM [Concomitant]
     Dosage: 40 MG, UNK
  5. ATENOLOL [Concomitant]
     Dosage: 60 MG, UNK

REACTIONS (3)
  - MALAISE [None]
  - CEREBROVASCULAR ACCIDENT [None]
  - BLOOD PRESSURE INCREASED [None]
